FAERS Safety Report 10512509 (Version 2)
Quarter: 2014Q4

REPORT INFORMATION
  Report Type: Report from Study
  Country: JP (occurrence: JP)
  Receive Date: 20141011
  Receipt Date: 20141011
  Transmission Date: 20150528
  Serious: Yes (Other)
  Sender: FDA-Public Use
  Company Number: JP-009507513-1309JPN005022

PATIENT
  Age: 8 Year
  Sex: Male

DRUGS (11)
  1. DIAZOXIDE CAPSULES 25 MG ^MSD^ [Suspect]
     Active Substance: DIAZOXIDE
     Dosage: 150 MG, QD
     Route: 048
     Dates: start: 20061026, end: 20070518
  2. DIAZOXIDE CAPSULES 25 MG ^MSD^ [Suspect]
     Active Substance: DIAZOXIDE
     Dosage: 66.7 MG, TID
     Route: 048
     Dates: start: 20090813, end: 20100305
  3. DIAZOXIDE CAPSULES 25 MG ^MSD^ [Suspect]
     Active Substance: DIAZOXIDE
     Dosage: 160 MG, QD
     Route: 048
     Dates: start: 20070519, end: 20071026
  4. THYRADIN-S [Concomitant]
     Active Substance: LEVOTHYROXINE
     Indication: HYPOTHYROIDISM
     Dosage: 15 MICROGRAM, QD, FORMULATION: POR
     Route: 048
  5. DIAZOXIDE CAPSULES 25 MG ^MSD^ [Suspect]
     Active Substance: DIAZOXIDE
     Indication: HYPOGLYCAEMIA
     Dosage: 145 MG, QD
     Route: 048
     Dates: end: 20061025
  6. DIAZOXIDE CAPSULES 25 MG ^MSD^ [Suspect]
     Active Substance: DIAZOXIDE
     Dosage: 80 MG, TID
     Route: 048
     Dates: start: 20120604
  7. DIAZOXIDE CAPSULES 25 MG ^MSD^ [Suspect]
     Active Substance: DIAZOXIDE
     Dosage: 180 MG, QD
     Route: 048
     Dates: start: 20071201, end: 20081024
  8. DIAZOXIDE CAPSULES 25 MG ^MSD^ [Suspect]
     Active Substance: DIAZOXIDE
     Dosage: 60 MG, TID
     Route: 048
     Dates: start: 20081101, end: 20090812
  9. DIAZOXIDE CAPSULES 25 MG ^MSD^ [Suspect]
     Active Substance: DIAZOXIDE
     Dosage: 76.6 MG, TID
     Route: 048
     Dates: start: 20111225, end: 20120603
  10. DIAZOXIDE CAPSULES 25 MG ^MSD^ [Suspect]
     Active Substance: DIAZOXIDE
     Dosage: 170 MG, QD
     Route: 048
     Dates: start: 20071027, end: 20071120
  11. DIAZOXIDE CAPSULES 25 MG ^MSD^ [Suspect]
     Active Substance: DIAZOXIDE
     Dosage: 75 MG, TID
     Route: 048
     Dates: start: 20100306, end: 20111224

REACTIONS (2)
  - Hypertrichosis [Not Recovered/Not Resolved]
  - Epilepsy [Recovered/Resolved]

NARRATIVE: CASE EVENT DATE: 20120303
